FAERS Safety Report 5012829-X (Version None)
Quarter: 2006Q2

REPORT INFORMATION
  Report Type: 
  Country: None (occurrence: None)
  Receive Date: 20060530
  Receipt Date: 20060407
  Transmission Date: 20061013
  Serious: Yes (Other)
  Sender: FDA-Public Use
  Company Number: US-BRISTOL-MYERS SQUIBB COMPANY-13340666

PATIENT
  Age: 68 Year
  Sex: Male
  Weight: 76 kg

DRUGS (6)
  1. ERBITUX [Suspect]
     Indication: COLON CANCER
     Route: 042
     Dates: start: 20060301, end: 20060301
  2. AVASTIN [Concomitant]
  3. BENADRYL [Concomitant]
     Indication: PREMEDICATION
     Route: 042
     Dates: start: 20060301
  4. CAMPTOSAR [Concomitant]
  5. TYLENOL (GELTAB) [Concomitant]
     Indication: PREMEDICATION
     Dates: start: 20060301
  6. ZOFRAN [Concomitant]
     Indication: PREMEDICATION

REACTIONS (4)
  - OEDEMA PERIPHERAL [None]
  - PAIN [None]
  - RASH [None]
  - SKIN CHAPPED [None]
